FAERS Safety Report 16046167 (Version 1)
Quarter: 2019Q1

REPORT INFORMATION
  Report Type: Spontaneous
  Country: US (occurrence: US)
  Receive Date: 20190307
  Receipt Date: 20190307
  Transmission Date: 20190418
  Serious: Yes (Other)
  Sender: FDA-Public Use
  Company Number: US-BAYER-2019-046163

PATIENT
  Age: 20 Year
  Sex: Female

DRUGS (4)
  1. LAMOTRIGINE. [Concomitant]
     Active Substance: LAMOTRIGINE
  2. KYLEENA [Suspect]
     Active Substance: LEVONORGESTREL
     Indication: CONTRACEPTION
     Dosage: 17.5 MCG/24HR, CONT
     Route: 015
     Dates: start: 20190301
  3. SULFONAMIDE [Concomitant]
     Active Substance: UNSPECIFIED INGREDIENT
  4. SUMATRIPTAN. [Concomitant]
     Active Substance: SUMATRIPTAN

REACTIONS (3)
  - Migraine [None]
  - Genital haemorrhage [None]
  - Abdominal pain lower [None]

NARRATIVE: CASE EVENT DATE: 20190304
